FAERS Safety Report 10606622 (Version 1)
Quarter: 2014Q4

REPORT INFORMATION
  Report Type: Spontaneous
  Country: US (occurrence: None)
  Receive Date: 20141124
  Receipt Date: 20141124
  Transmission Date: 20150529
  Serious: Yes (Hospitalization)
  Sender: FDA-Public Use
  Company Number: None

PATIENT
  Age: 69 Year
  Sex: Female
  Weight: 77.5 kg

DRUGS (8)
  1. FEMARA [Concomitant]
     Active Substance: LETROZOLE
  2. ALDACTONE [Concomitant]
     Active Substance: SPIRONOLACTONE
  3. DILTIAZEM [Concomitant]
     Active Substance: DILTIAZEM
  4. ADVAIR HFA [Concomitant]
     Active Substance: FLUTICASONE PROPIONATE\SALMETEROL XINAFOATE
  5. COUMADIN [Suspect]
     Active Substance: WARFARIN SODIUM
     Indication: CARDIAC PACEMAKER INSERTION
     Route: 048
  6. FOLVITE [Concomitant]
     Active Substance: FOLIC ACID
  7. COUMADIN [Suspect]
     Active Substance: WARFARIN SODIUM
     Indication: ATRIAL FLUTTER
     Route: 048
  8. LASIX [Concomitant]
     Active Substance: FUROSEMIDE

REACTIONS (3)
  - International normalised ratio increased [None]
  - Pneumonia [None]
  - Coagulopathy [None]

NARRATIVE: CASE EVENT DATE: 20140630
